FAERS Safety Report 13355338 (Version 1)
Quarter: 2017Q1

REPORT INFORMATION
  Report Type: Spontaneous
  Country: BR (occurrence: BR)
  Receive Date: 20170321
  Receipt Date: 20170321
  Transmission Date: 20170429
  Serious: Yes (Other)
  Sender: FDA-Public Use
  Company Number: BR-JNJFOC-20170318404

PATIENT
  Age: 51 Year
  Sex: Male

DRUGS (19)
  1. REMICADE [Suspect]
     Active Substance: INFLIXIMAB
     Indication: ANKYLOSING SPONDYLITIS
     Dosage: THIRD INFUSION
     Route: 042
     Dates: start: 20110811
  2. PREDNISONE. [Suspect]
     Active Substance: PREDNISONE
     Indication: UVEITIS
     Dosage: 9 WEEKS
     Route: 065
     Dates: start: 20120202
  3. REMICADE [Suspect]
     Active Substance: INFLIXIMAB
     Indication: ANKYLOSING SPONDYLITIS
     Dosage: 19TH INFUSION
     Route: 042
     Dates: start: 20141113
  4. PREDNISONE. [Suspect]
     Active Substance: PREDNISONE
     Indication: UVEITIS
     Route: 065
  5. REMICADE [Suspect]
     Active Substance: INFLIXIMAB
     Indication: ANKYLOSING SPONDYLITIS
     Dosage: SEVENTEENTH INFUSION
     Route: 042
     Dates: start: 20140718
  6. REMICADE [Suspect]
     Active Substance: INFLIXIMAB
     Indication: ANKYLOSING SPONDYLITIS
     Dosage: SIXTH INFUSION
     Route: 042
     Dates: start: 20120202
  7. REMICADE [Suspect]
     Active Substance: INFLIXIMAB
     Indication: ANKYLOSING SPONDYLITIS
     Dosage: INTERVAL BETWEEN 8 AND 13 WEEKS
     Route: 042
     Dates: start: 20110629
  8. PREDNISONE. [Suspect]
     Active Substance: PREDNISONE
     Indication: UVEITIS
     Route: 065
  9. REMICADE [Suspect]
     Active Substance: INFLIXIMAB
     Indication: ANKYLOSING SPONDYLITIS
     Dosage: EIGHTH INFUSION
     Route: 042
     Dates: start: 20120612
  10. PREDNISONE. [Suspect]
     Active Substance: PREDNISONE
     Indication: UVEITIS
     Route: 065
     Dates: start: 20111006
  11. PREDNISONE. [Suspect]
     Active Substance: PREDNISONE
     Indication: UVEITIS
     Route: 065
  12. REMICADE [Suspect]
     Active Substance: INFLIXIMAB
     Indication: ANKYLOSING SPONDYLITIS
     Dosage: ELEVENTH INFUSION
     Route: 042
     Dates: start: 20130218
  13. PREDNISONE. [Suspect]
     Active Substance: PREDNISONE
     Indication: UVEITIS
     Route: 065
     Dates: start: 200711
  14. PREDNISONE. [Suspect]
     Active Substance: PREDNISONE
     Indication: UVEITIS
     Route: 065
     Dates: start: 2007
  15. PREDNISONE. [Suspect]
     Active Substance: PREDNISONE
     Indication: UVEITIS
     Route: 065
     Dates: start: 20110811
  16. REMICADE [Suspect]
     Active Substance: INFLIXIMAB
     Indication: ANKYLOSING SPONDYLITIS
     Dosage: FOURTH INFUSION
     Route: 042
     Dates: start: 20111006
  17. REMICADE [Suspect]
     Active Substance: INFLIXIMAB
     Indication: ANKYLOSING SPONDYLITIS
     Dosage: SIXTEENTH INFUSION
     Route: 042
     Dates: start: 20140523
  18. REMICADE [Suspect]
     Active Substance: INFLIXIMAB
     Indication: ANKYLOSING SPONDYLITIS
     Dosage: TWENTY-NINTH INFUSION, 13 WEEK INTERVAL
     Route: 042
     Dates: start: 20170201
  19. PREDNISONE. [Suspect]
     Active Substance: PREDNISONE
     Indication: UVEITIS
     Dosage: 11 WEEKS, 13 WEEKS
     Route: 065
     Dates: start: 20120612, end: 20130218

REACTIONS (4)
  - Off label use [Unknown]
  - Uveitis [Recovered/Resolved]
  - Product use issue [Unknown]
  - Enthesopathy [Recovered/Resolved]

NARRATIVE: CASE EVENT DATE: 20110629
